FAERS Safety Report 9473997 (Version 1)
Quarter: 2013Q3

REPORT INFORMATION
  Report Type: Spontaneous
  Country: IN (occurrence: None)
  Receive Date: 20130820
  Receipt Date: 20130820
  Transmission Date: 20140515
  Serious: Yes (Other)
  Sender: FDA-Public Use
  Company Number: 2013CP000095

PATIENT
  Age: 22 Year
  Sex: Female

DRUGS (2)
  1. PARACETAMOL (PARACETAMOL) [Suspect]
     Indication: PYREXIA
     Dates: start: 19960417
  2. PARACETAMOL (PARACETAMOL) [Suspect]
     Indication: CHILLS
     Dates: start: 19960417

REACTIONS (3)
  - Stevens-Johnson syndrome [None]
  - Keratitis [None]
  - Uveitis [None]
